FAERS Safety Report 11589978 (Version 2)
Quarter: 2015Q4

REPORT INFORMATION
  Report Type: Report from Study
  Country: DE (occurrence: DE)
  Receive Date: 20151002
  Receipt Date: 20151016
  Transmission Date: 20160304
  Serious: Yes (Hospitalization)
  Sender: FDA-Public Use
  Company Number: DE-ABBVIE-15P-062-1471731-00

PATIENT
  Age: 57 Year
  Sex: Female

DRUGS (1)
  1. DUODOPA [Suspect]
     Active Substance: CARBIDOPA\LEVODOPA
     Indication: PARKINSON^S DISEASE
     Dosage: MD 0ML, CRD 2.1ML/H, CRN 1.7ML/H, ED 2ML
     Route: 050
     Dates: start: 20150116

REACTIONS (3)
  - Dialysis [Unknown]
  - Surgery [Unknown]
  - Ileus [Unknown]

NARRATIVE: CASE EVENT DATE: 201509
